FAERS Safety Report 5836470-1 (Version None)
Quarter: 2008Q3

REPORT INFORMATION
  Report Type: 
  Country: None (occurrence: None)
  Receive Date: 20080807
  Receipt Date: 20080731
  Transmission Date: 20090109
  Serious: Yes (Hospitalization, Other)
  Sender: FDA-Public Use
  Company Number: PHHY2008JP16067

PATIENT
  Sex: Male

DRUGS (3)
  1. LUDIOMIL [Suspect]
     Indication: DEPRESSION
     Dosage: 20 MG DAILY
     Route: 048
     Dates: start: 20000101
  2. KENTON [Concomitant]
     Dosage: 600 MG
     Dates: start: 20000101
  3. BAYASPIRIN [Concomitant]
     Dosage: 100 MG
     Dates: start: 20000101

REACTIONS (3)
  - OESOPHAGEAL ACHALASIA [None]
  - PNEUMONIA ASPIRATION [None]
  - VOMITING [None]
